FAERS Safety Report 9943984 (Version 1)
Quarter: 2014Q1

REPORT INFORMATION
  Report Type: Spontaneous
  Country: US (occurrence: US)
  Receive Date: 20140303
  Receipt Date: 20140303
  Transmission Date: 20141002
  Serious: No
  Sender: FDA-Public Use
  Company Number: US-GILEAD-2012-0065643

PATIENT
  Sex: Male

DRUGS (2)
  1. RANEXA [Suspect]
     Indication: MYOCARDIAL ISCHAEMIA
     Dosage: 1000 MG, BID
     Route: 048
     Dates: start: 20121124, end: 20121128
  2. RANEXA [Suspect]
     Dosage: 500 MG, BID
     Route: 048
     Dates: end: 20121124

REACTIONS (4)
  - Cold sweat [Recovered/Resolved]
  - Unevaluable event [Unknown]
  - Nausea [Recovered/Resolved]
  - Constipation [Not Recovered/Not Resolved]
